FAERS Safety Report 23526331 (Version 1)
Quarter: 2024Q1

REPORT INFORMATION
  Report Type: Spontaneous
  Country: US (occurrence: None)
  Receive Date: 20240214
  Receipt Date: 20240214
  Transmission Date: 20240410
  Serious: No
  Sender: FDA-Public Use
  Company Number: None

PATIENT
  Age: 43 Year
  Sex: Female
  Weight: 67.5 kg

DRUGS (1)
  1. LURASIDONE [Suspect]
     Active Substance: LURASIDONE
     Indication: Bipolar disorder
     Dosage: OTHER QUANTITY : 1 TABLET(S);?FREQUENCY : AT BEDTIME;?
     Route: 048
     Dates: start: 20231107, end: 20240211

REACTIONS (6)
  - Musculoskeletal stiffness [None]
  - Nausea [None]
  - Pollakiuria [None]
  - Nervousness [None]
  - Drooling [None]
  - Feeling hot [None]

NARRATIVE: CASE EVENT DATE: 20240117
